FAERS Safety Report 21657611 (Version 1)
Quarter: 2022Q4

REPORT INFORMATION
  Report Type: Spontaneous
  Country: US (occurrence: None)
  Receive Date: 20221128
  Receipt Date: 20221128
  Transmission Date: 20230112
  Serious: Yes (Death)
  Sender: FDA-Public Use
  Company Number: None

PATIENT
  Age: 78 Year
  Sex: Female

DRUGS (1)
  1. AUSTEDO [Suspect]
     Active Substance: DEUTETRABENAZINE
     Indication: Tardive dyskinesia
     Dosage: OTHER FREQUENCY : 18 MG QA 27 MG QP;?
     Route: 048
     Dates: start: 20201211

REACTIONS (1)
  - Death [None]

NARRATIVE: CASE EVENT DATE: 20221114
